FAERS Safety Report 7236211-X (Version None)
Quarter: 2011Q1

REPORT INFORMATION
  Report Type: 
  Country: None (occurrence: None)
  Receive Date: 20110120
  Receipt Date: 20110114
  Transmission Date: 20110831
  Serious: Yes (Hospitalization, Other)
  Sender: FDA-Public Use
  Company Number: US-ABBOTT-10P-163-0690117-00

PATIENT
  Age: 78 Year
  Sex: Female

DRUGS (6)
  1. LORAZEPAM [Concomitant]
     Indication: SLEEP DISORDER THERAPY
  2. LORAZEPAM [Concomitant]
     Indication: ANXIOLYTIC THERAPY
  3. HUMIRA [Suspect]
     Indication: RHEUMATOID ARTHRITIS
     Route: 058
     Dates: start: 20100922, end: 20101025
  4. CELEBREX [Concomitant]
     Indication: RHEUMATOID ARTHRITIS
  5. OMEPRAZOLE [Concomitant]
     Indication: HYPERCHLORHYDRIA
  6. CARVEDILOL [Concomitant]
     Indication: BLOOD PRESSURE

REACTIONS (5)
  - INFLUENZA [None]
  - INCOHERENT [None]
  - THROMBOSIS [None]
  - FEELING ABNORMAL [None]
  - BLOOD VISCOSITY INCREASED [None]
